FAERS Safety Report 8436208-8 (Version None)
Quarter: 2012Q2

REPORT INFORMATION
  Report Type: 
  Country: None (occurrence: None)
  Receive Date: 20120614
  Receipt Date: 20120608
  Transmission Date: 20120825
  Serious: Yes (Hospitalization)
  Sender: FDA-Public Use
  Company Number: FR-ROCHE-1077041

PATIENT
  Age: 48 Year
  Sex: Female

DRUGS (12)
  1. SEROQUEL [Concomitant]
     Indication: BIPOLAR I DISORDER
     Dates: start: 20111101
  2. VALIUM [Suspect]
     Indication: ANXIETY
     Route: 048
     Dates: start: 20120313
  3. TERCIAN [Suspect]
     Indication: PSYCHOTIC DISORDER
     Route: 048
     Dates: start: 20120313
  4. ATHYMIL [Concomitant]
     Indication: DEPRESSION
     Route: 048
  5. EFFEXOR [Concomitant]
     Indication: DEPRESSION
     Route: 048
     Dates: start: 20111101
  6. ABILIFY [Concomitant]
     Route: 048
     Dates: start: 20111101
  7. RISPERDAL [Concomitant]
     Dates: start: 20120403
  8. LITHIUM CARBONATE [Concomitant]
     Indication: PROPHYLAXIS
     Dates: start: 20111101
  9. LITHIUM CARBONATE [Concomitant]
     Route: 048
     Dates: start: 20120317, end: 20120328
  10. LEVOTHYROXINE SODIUM [Concomitant]
     Indication: HYPOTHYROIDISM
     Route: 048
     Dates: start: 20111101
  11. SEROQUEL [Concomitant]
     Route: 048
     Dates: start: 20120327, end: 20120328
  12. LITHIUM CARBONATE [Concomitant]
     Dates: start: 20120403

REACTIONS (1)
  - HEPATITIS CHOLESTATIC [None]
